FAERS Safety Report 7312645-X (Version None)
Quarter: 2011Q1

REPORT INFORMATION
  Report Type: 
  Country: None (occurrence: None)
  Receive Date: 20110224
  Receipt Date: 20101102
  Transmission Date: 20110831
  Serious: No
  Sender: FDA-Public Use
  Company Number: US-MYLANLABS-2010S1020298

PATIENT
  Age: 78 Year
  Sex: Male

DRUGS (3)
  1. ASA [Concomitant]
  2. NADOLOL [Concomitant]
     Indication: BLOOD PRESSURE INCREASED
  3. LANSOPRAZOLE [Suspect]
     Indication: ABDOMINAL DISCOMFORT
     Route: 048
     Dates: start: 20101001

REACTIONS (1)
  - ABDOMINAL PAIN [None]
